FAERS Safety Report 8026995-5 (Version None)
Quarter: 2012Q1

REPORT INFORMATION
  Report Type: 
  Country: None (occurrence: None)
  Receive Date: 20120106
  Receipt Date: 20120103
  Transmission Date: 20120608
  Serious: Yes (Hospitalization)
  Sender: FDA-Public Use
  Company Number: FR-PFIZER INC-2012000581

PATIENT
  Age: 5 Year
  Sex: Female

DRUGS (1)
  1. PEDIATRIC ADVIL [Suspect]
     Indication: FRACTURE
     Dosage: 20 MG/1 ML
     Dates: start: 20111001, end: 20111003

REACTIONS (1)
  - PANCREATITIS ACUTE [None]
